FAERS Safety Report 6594858-8 (Version None)
Quarter: 2010Q1

REPORT INFORMATION
  Report Type: 
  Country: None (occurrence: None)
  Receive Date: 20100222
  Receipt Date: 20100215
  Transmission Date: 20100710
  Serious: Yes (Hospitalization, Other)
  Sender: FDA-Public Use
  Company Number: JP-PFIZER INC-2010012339

PATIENT
  Age: 53 Year
  Sex: Female

DRUGS (1)
  1. AZULFIDINE [Suspect]
     Indication: RHEUMATOID ARTHRITIS
     Route: 048

REACTIONS (2)
  - DRUG RASH WITH EOSINOPHILIA AND SYSTEMIC SYMPTOMS [None]
  - HEPATIC FUNCTION ABNORMAL [None]
